FAERS Safety Report 6515114 (Version 3)
Quarter: 2021Q1

REPORT INFORMATION
  Report Type: Spontaneous
  Country: US (occurrence: US)
  Receive Date: 20071227
  Receipt Date: 20210104
  Transmission Date: 20210420
  Serious: Yes (Death, Hospitalization, Other)
  Sender: FDA-Public Use
  Company Number: US-PURDUE-USA_2007_0030746

PATIENT
  Age: 29 Year
  Sex: Male

DRUGS (2)
  1. OXYCONTIN [Suspect]
     Active Substance: OXYCODONE HYDROCHLORIDE
     Indication: PAIN
     Dosage: 20 MG, BID
     Route: 048
     Dates: start: 199812, end: 200201
  2. HYDROMORPHONE TABLETS [Suspect]
     Active Substance: HYDROMORPHONE
     Indication: PRODUCT USED FOR UNKNOWN INDICATION
     Dosage: UNK
     Route: 048

REACTIONS (12)
  - Carbon monoxide poisoning [Fatal]
  - Headache [None]
  - Impaired work ability [Unknown]
  - Mania [Unknown]
  - Completed suicide [Fatal]
  - Back pain [None]
  - Amnesia [Unknown]
  - Substance dependence [Unknown]
  - Decreased appetite [Unknown]
  - Anxiety [None]
  - Depression [Unknown]
  - Substance abuse [None]

NARRATIVE: CASE EVENT DATE: 20020117
